FAERS Safety Report 8003751-5 (Version None)
Quarter: 2011Q4

REPORT INFORMATION
  Report Type: 
  Country: None (occurrence: None)
  Receive Date: 20111222
  Receipt Date: 20111215
  Transmission Date: 20120403
  Serious: Yes (Life-Threatening, Hospitalization)
  Sender: FDA-Public Use
  Company Number: US-BAXTER-2011BH039464

PATIENT
  Age: 11 Year
  Sex: Male

DRUGS (10)
  1. CISPLATIN [Suspect]
     Indication: SARCOMA
     Route: 042
     Dates: start: 20011002
  2. TRASTUZUMAB [Suspect]
     Indication: SARCOMA
     Route: 042
     Dates: start: 20011002
  3. MESNA [Suspect]
     Indication: SARCOMA
     Route: 042
     Dates: start: 20011002
  4. DOXORUBICIN HCL [Suspect]
     Indication: SARCOMA
     Route: 042
     Dates: start: 20011002
  5. LEUCOVORIN CALCIUM [Suspect]
     Indication: SARCOMA
     Route: 048
     Dates: start: 20011002
  6. IFOSFAMIDE [Suspect]
     Indication: SARCOMA
     Route: 042
     Dates: start: 20011002
  7. ETOPOSIDE [Suspect]
     Indication: SARCOMA
     Route: 042
     Dates: start: 20011002
  8. FILGRASTIM [Suspect]
     Indication: SARCOMA
     Route: 058
     Dates: start: 20111002
  9. DEXRAZOXANE HYDROCHLORIDE [Suspect]
     Indication: SARCOMA
     Route: 042
     Dates: start: 20011002
  10. METHOTREXATE [Suspect]
     Indication: SARCOMA
     Route: 042
     Dates: start: 20011002

REACTIONS (2)
  - INFECTION [None]
  - PYREXIA [None]
